FAERS Safety Report 7506501-1 (Version None)
Quarter: 2011Q2

REPORT INFORMATION
  Report Type: 
  Country: None (occurrence: None)
  Receive Date: 20110526
  Receipt Date: 20110513
  Transmission Date: 20111010
  Serious: Yes (Hospitalization, Other)
  Sender: FDA-Public Use
  Company Number: US-BAYER-2011-044661

PATIENT
  Age: 39 Year
  Sex: Female
  Weight: 86.168 kg

DRUGS (8)
  1. YAZ [Suspect]
     Dosage: UNK
     Dates: start: 20080630
  2. YAZ [Suspect]
     Indication: PREMENSTRUAL SYNDROME
     Dosage: UNK
     Dates: start: 20060620
  3. YAZ [Suspect]
     Dosage: UNK
     Dates: start: 20080212
  4. YAZ [Suspect]
     Indication: CONTRACEPTION
     Dosage: UNK
     Dates: start: 20070101, end: 20080101
  5. YAZ [Suspect]
     Dosage: UNK
     Dates: start: 20070823
  6. YAZ [Suspect]
     Dosage: UNK
     Dates: start: 20070225
  7. CELEXA [Concomitant]
  8. YAZ [Suspect]
     Dosage: UNK
     Dates: start: 20061013

REACTIONS (11)
  - DYSPNOEA [None]
  - MUSCULOSKELETAL CHEST PAIN [None]
  - OEDEMA PERIPHERAL [None]
  - CHEST PAIN [None]
  - ANXIETY [None]
  - HYPOAESTHESIA [None]
  - PULMONARY EMBOLISM [None]
  - ASTHENIA [None]
  - FALL [None]
  - PULMONARY THROMBOSIS [None]
  - FATIGUE [None]
